FAERS Safety Report 10816447 (Version 1)
Quarter: 2015Q1

REPORT INFORMATION
  Report Type: Other
  Country: GB (occurrence: GB)
  Receive Date: 20150218
  Receipt Date: 20150218
  Transmission Date: 20150721
  Serious: Yes (Other)
  Sender: FDA-Public Use
  Company Number: GB-MYLANLABS-2015M1003703

PATIENT

DRUGS (8)
  1. APREPITANT. [Concomitant]
     Active Substance: APREPITANT
     Dosage: 125 MG, UNK
     Dates: start: 20141126
  2. OXALIPLATIN. [Suspect]
     Active Substance: OXALIPLATIN
     Indication: COLORECTAL CANCER
     Dosage: OXMDG REGIME, REDUCED ON AN UNKNOWN DATE
     Route: 042
     Dates: start: 20141222
  3. SODIUM CHLORIDE. [Suspect]
     Active Substance: SODIUM CHLORIDE
     Dosage: UNK, (0.9%)
  4. APREPITANT. [Concomitant]
     Active Substance: APREPITANT
     Dosage: 80 MG, QD
     Route: 048
     Dates: start: 20141128
  5. FOLINIC ACID [Concomitant]
     Active Substance: LEUCOVORIN
     Dosage: OXMDG REGIME
  6. FLUOROURACIL. [Suspect]
     Active Substance: FLUOROURACIL
     Indication: COLORECTAL CANCER
     Dosage: 3800 MG, UNK (OXMDG REGIME, IN LV5 PUMP 3800MG OVER 46 HOURS)
     Route: 042
  7. FLUOROURACIL. [Suspect]
     Active Substance: FLUOROURACIL
     Dosage: 640 MG, UNK (OXMDG REGIME, BOLUS SYRINGE)
     Route: 040
     Dates: start: 20141222
  8. RANITIDINE [Concomitant]
     Active Substance: RANITIDINE\RANITIDINE HYDROCHLORIDE
     Dosage: 150 MG, BID
     Route: 048

REACTIONS (6)
  - Fatigue [Not Recovered/Not Resolved]
  - Incorrect drug administration rate [Recovered/Resolved]
  - Cough [Not Recovered/Not Resolved]
  - Mood swings [Not Recovered/Not Resolved]
  - Neuropathy peripheral [Not Recovered/Not Resolved]
  - Malaise [Not Recovered/Not Resolved]

NARRATIVE: CASE EVENT DATE: 20150113
